FAERS Safety Report 12645092 (Version 8)
Quarter: 2017Q2

REPORT INFORMATION
  Report Type: Spontaneous
  Country: US (occurrence: US)
  Receive Date: 20160811
  Receipt Date: 20170601
  Transmission Date: 20170830
  Serious: Yes (Congenital Anomaly, Other)
  Sender: FDA-Public Use
  Company Number: PHHY2015US127218

PATIENT
  Sex: Female

DRUGS (2)
  1. ONDANSETRON HYDROCHLORIDE. [Suspect]
     Active Substance: ONDANSETRON HYDROCHLORIDE
     Indication: FOETAL EXPOSURE DURING PREGNANCY
     Route: 064
  2. ZOFRAN [Suspect]
     Active Substance: ONDANSETRON HYDROCHLORIDE
     Indication: FOETAL EXPOSURE DURING PREGNANCY
     Dosage: MOTHER^S DOSE: 8 MG AND 4 MG
     Route: 064

REACTIONS (43)
  - Low set ears [Unknown]
  - Microcephaly [Unknown]
  - Right ventricular hypertension [Unknown]
  - Otitis media chronic [Unknown]
  - Eustachian tube dysfunction [Unknown]
  - Congenital scoliosis [Unknown]
  - Hypertelorism of orbit [Unknown]
  - Anhedonia [Unknown]
  - Cognitive disorder [Unknown]
  - Keratopathy [Unknown]
  - Ectropion [Unknown]
  - Retrognathia [Unknown]
  - Tricuspid valve incompetence [Unknown]
  - Foetal exposure during pregnancy [Unknown]
  - Failure to thrive [Unknown]
  - Urinary tract infection [Unknown]
  - Learning disability [Unknown]
  - Congenital inguinal hernia [Unknown]
  - Syndactyly [Unknown]
  - Congenital diaphragmatic hernia [Unknown]
  - Heart disease congenital [Unknown]
  - Pulmonary arterial hypertension [Unknown]
  - Infantile apnoea [Unknown]
  - Corneal opacity [Unknown]
  - Ear canal stenosis [Unknown]
  - Exophthalmos [Unknown]
  - Premature baby [Unknown]
  - Anisometropia [Unknown]
  - Deafness [Unknown]
  - Photophobia [Unknown]
  - Developmental delay [Unknown]
  - Upper respiratory tract infection [Unknown]
  - Cerumen impaction [Unknown]
  - Cardiac murmur [Unknown]
  - Chest pain [Unknown]
  - Aorta hypoplasia [Unknown]
  - Dysmorphism [Unknown]
  - Coarctation of the aorta [Unknown]
  - Strabismus [Unknown]
  - Lymphoedema [Unknown]
  - Atrial septal defect [Recovered/Resolved]
  - Left ventricular dysfunction [Unknown]
  - Blepharitis [Unknown]
